FAERS Safety Report 17240711 (Version 1)
Quarter: 2020Q1

REPORT INFORMATION
  Report Type: Spontaneous
  Country: NL (occurrence: NL)
  Receive Date: 20200107
  Receipt Date: 20200107
  Transmission Date: 20200409
  Serious: Yes (Other)
  Sender: FDA-Public Use
  Company Number: NL-TEVA-2019-NL-1162148

PATIENT
  Age: 28 Year
  Sex: Female
  Weight: 62 kg

DRUGS (4)
  1. PREDNISOLON TABLET, 20 MG (MILLIGRAM) [Suspect]
     Active Substance: PREDNISOLONE
     Indication: STILL^S DISEASE
     Dosage: FINISHED FROM 3 TABLETS PER DAY (60 MG) 1 DOSAGE FORMS
     Route: 065
     Dates: start: 20180801, end: 20190630
  2. BOTVERSTERKERS [Concomitant]
  3. CALCIUMTABLETTEN [Concomitant]
  4. MAAGBESCHERMERS [Concomitant]

REACTIONS (30)
  - Suicidal ideation [Recovered/Resolved with Sequelae]
  - Depression [Recovered/Resolved]
  - Taste disorder [Recovered/Resolved with Sequelae]
  - Skin atrophy [Recovered/Resolved with Sequelae]
  - Skin exfoliation [Recovered/Resolved with Sequelae]
  - Faeces discoloured [Recovered/Resolved with Sequelae]
  - Weight increased [Recovered/Resolved with Sequelae]
  - Mood swings [Recovered/Resolved with Sequelae]
  - Movement disorder [Recovered/Resolved with Sequelae]
  - Abdominal distension [Recovered/Resolved with Sequelae]
  - Tachycardia [Recovered/Resolved with Sequelae]
  - Abnormal faeces [Recovered/Resolved with Sequelae]
  - Hunger [Recovered/Resolved with Sequelae]
  - Parosmia [Recovered/Resolved with Sequelae]
  - Memory impairment [Recovered/Resolved with Sequelae]
  - Alopecia [Recovered/Resolved with Sequelae]
  - Vision blurred [Recovered/Resolved with Sequelae]
  - Hirsutism [Recovered/Resolved with Sequelae]
  - Tremor [Recovered/Resolved with Sequelae]
  - Mental disorder [Recovered/Resolved with Sequelae]
  - Panic disorder [Recovered/Resolved with Sequelae]
  - Hyperhidrosis [Recovered/Resolved with Sequelae]
  - Neck deformity [Recovered/Resolved with Sequelae]
  - Gait disturbance [Recovered/Resolved with Sequelae]
  - Amenorrhoea [Recovering/Resolving]
  - Delusion [Recovered/Resolved with Sequelae]
  - Disturbance in attention [Recovered/Resolved with Sequelae]
  - Withdrawal syndrome [Recovered/Resolved with Sequelae]
  - Swelling face [Recovered/Resolved with Sequelae]
  - Restlessness [Recovered/Resolved with Sequelae]

NARRATIVE: CASE EVENT DATE: 20180801
